FAERS Safety Report 20488610 (Version 1)
Quarter: 2022Q1

REPORT INFORMATION
  Report Type: Spontaneous
  Country: US (occurrence: US)
  Receive Date: 20220218
  Receipt Date: 20220218
  Transmission Date: 20220423
  Serious: Yes (Other)
  Sender: FDA-Public Use
  Company Number: US-UCBSA-2022007895

PATIENT

DRUGS (4)
  1. BRIVIACT [Suspect]
     Active Substance: BRIVARACETAM
     Indication: Status epilepticus
     Dosage: 100 MILLIGRAM
  2. BRIVIACT [Suspect]
     Active Substance: BRIVARACETAM
     Dosage: INCREASED DOSE
  3. NAYZILAM [Suspect]
     Active Substance: MIDAZOLAM
     Indication: Status epilepticus
     Dosage: 5 MILLIGRAM, UNK
  4. NAYZILAM [Suspect]
     Active Substance: MIDAZOLAM
     Indication: Seizure cluster

REACTIONS (3)
  - Seizure [Unknown]
  - Change in seizure presentation [Unknown]
  - Product use in unapproved indication [Unknown]
